FAERS Safety Report 9261881 (Version 1)
Quarter: 2013Q2

REPORT INFORMATION
  Report Type: Spontaneous
  Country: DE (occurrence: DE)
  Receive Date: 20130429
  Receipt Date: 20130429
  Transmission Date: 20140414
  Serious: Yes (Hospitalization)
  Sender: FDA-Public Use
  Company Number: DE-ASTRAZENECA-2013SE28816

PATIENT
  Age: 4 Month
  Sex: Male

DRUGS (1)
  1. SYNAGIS [Suspect]
     Indication: ANTIVIRAL PROPHYLAXIS
     Route: 030
     Dates: start: 2012, end: 2012

REACTIONS (2)
  - Parvovirus infection [Recovered/Resolved]
  - Respiratory syncytial virus infection [Recovered/Resolved]
